FAERS Safety Report 5191951-1 (Version None)
Quarter: 2006Q4

REPORT INFORMATION
  Report Type: 
  Country: None (occurrence: None)
  Receive Date: 20061227
  Receipt Date: 20061220
  Transmission Date: 20070319
  Serious: Yes (Hospitalization)
  Sender: FDA-Public Use
  Company Number: CO-BRISTOL-MYERS SQUIBB COMPANY-13620299

PATIENT
  Age: 73 Year
  Sex: Female

DRUGS (1)
  1. BRISTAXOL [Suspect]
     Route: 042

REACTIONS (5)
  - CHILLS [None]
  - HYPERHIDROSIS [None]
  - HYPOTENSION [None]
  - INCONTINENCE [None]
  - RESPIRATORY ARREST [None]
